FAERS Safety Report 23339313 (Version 1)
Quarter: 2023Q4

REPORT INFORMATION
  Report Type: Spontaneous
  Country: JP (occurrence: None)
  Receive Date: 20231226
  Receipt Date: 20231226
  Transmission Date: 20240109
  Serious: Yes (Life-Threatening, Hospitalization, Other)
  Sender: FDA-Public Use
  Company Number: 2022A229546

PATIENT
  Age: 81 Year
  Sex: Female
  Weight: 32 kg

DRUGS (3)
  1. DAPAGLIFLOZIN [Suspect]
     Active Substance: DAPAGLIFLOZIN
     Indication: Type 2 diabetes mellitus
     Route: 048
     Dates: end: 2022
  2. ANAMORELIN HYDROCHLORIDE [Suspect]
     Active Substance: ANAMORELIN HYDROCHLORIDE
     Indication: Pancreatic carcinoma
     Route: 048
     Dates: start: 20220218, end: 20220224
  3. INSULIN LISPRO [Concomitant]
     Active Substance: INSULIN LISPRO
     Dosage: 8 - 8 - 2
     Route: 058
     Dates: end: 2022

REACTIONS (7)
  - Venous thrombosis limb [Unknown]
  - Diabetic ketoacidosis [Recovering/Resolving]
  - Urinary tract infection [Recovered/Resolved]
  - Pulmonary congestion [Unknown]
  - Decreased appetite [Not Recovered/Not Resolved]
  - Hydronephrosis [Unknown]
  - Product dose omission issue [Unknown]

NARRATIVE: CASE EVENT DATE: 20220225
